FAERS Safety Report 11105468 (Version 2)
Quarter: 2015Q2

REPORT INFORMATION
  Report Type: Spontaneous
  Country: US (occurrence: US)
  Receive Date: 20150512
  Receipt Date: 20150625
  Transmission Date: 20150821
  Serious: Yes (Hospitalization, Other)
  Sender: FDA-Public Use
  Company Number: US-PFIZER INC-2015153553

PATIENT
  Age: 63 Year
  Sex: Female
  Weight: 81 kg

DRUGS (40)
  1. LISINOPRIL. [Concomitant]
     Active Substance: LISINOPRIL
     Dosage: 40 MG, 1X/DAY
  2. FLUOXETINE HCL [Concomitant]
     Active Substance: FLUOXETINE HYDROCHLORIDE
     Indication: DEPRESSION
  3. AMLODIPINE BESYLATE. [Concomitant]
     Active Substance: AMLODIPINE BESYLATE
     Indication: BLOOD PRESSURE ABNORMAL
     Dosage: 5 MG, 1X/DAY
     Route: 048
  4. VENTOLIN [Concomitant]
     Active Substance: ALBUTEROL SULFATE
     Indication: ASTHMA
     Dosage: 18MCG TWO PUFFS AS NEEDED
  5. EQUATE FIBER THERAPY [Concomitant]
     Active Substance: CALCIUM POLYCARBOPHIL
     Indication: IRRITABLE BOWEL SYNDROME
  6. FENOFIBRATE. [Concomitant]
     Active Substance: FENOFIBRATE
     Indication: BLOOD TRIGLYCERIDES INCREASED
     Dosage: 54 MG, DAILY
     Route: 048
  7. FLUOXETINE HCL [Concomitant]
     Active Substance: FLUOXETINE HYDROCHLORIDE
     Indication: ANXIETY
     Dosage: 40 MG, 1X/DAY
     Route: 048
  8. OMEPRAZOLE. [Concomitant]
     Active Substance: OMEPRAZOLE
     Indication: OESOPHAGEAL ULCER
  9. TYLENOL ARTHRITIS PAIN [Concomitant]
     Active Substance: ACETAMINOPHEN
     Indication: NECK INJURY
     Dosage: 2000 MG, DAILY
  10. OMEPRAZOLE. [Concomitant]
     Active Substance: OMEPRAZOLE
     Indication: GASTRIC ULCER
  11. CRANBERRY. [Concomitant]
     Active Substance: CRANBERRY
     Indication: PROPHYLAXIS
     Dosage: 4 DF, DAILY
  12. EQUATE FIBER THERAPY [Concomitant]
     Active Substance: CALCIUM POLYCARBOPHIL
     Indication: CONSTIPATION
     Dosage: 6 DF, DAILY
  13. LYRICA [Suspect]
     Active Substance: PREGABALIN
     Indication: TREMOR
     Dosage: 75 MG, 2X/DAY
     Route: 048
     Dates: start: 201410
  14. ASPIRIN. [Concomitant]
     Active Substance: ASPIRIN
     Indication: ANTICOAGULANT THERAPY
     Dosage: 325 MG, 1X/DAY
     Route: 048
  15. DIPHENHYDRAMINE HCL [Concomitant]
     Active Substance: DIPHENHYDRAMINE HYDROCHLORIDE
     Dosage: 25MG Q4H PRN
     Route: 048
  16. MULTIVITAMINS [Concomitant]
     Active Substance: VITAMINS
     Dosage: 1 DF, DAILY
     Route: 048
  17. CLOPIDOGREL BISULFATE. [Concomitant]
     Active Substance: CLOPIDOGREL BISULFATE
     Dosage: 75 MG, 1X/DAY
     Route: 048
  18. PRIMIDONE. [Concomitant]
     Active Substance: PRIMIDONE
     Indication: TREMOR
     Dosage: 150 MG, 2X/DAY
     Route: 048
  19. GABAPENTIN. [Concomitant]
     Active Substance: GABAPENTIN
     Indication: TREMOR
     Dosage: 300 MG, 1X/DAY
  20. PANTOPRAZOLE [Concomitant]
     Active Substance: PANTOPRAZOLE SODIUM
     Indication: GASTRIC ULCER
     Dosage: 40 MG, 2X/DAY
     Route: 048
  21. PANTOPRAZOLE [Concomitant]
     Active Substance: PANTOPRAZOLE SODIUM
     Indication: GASTROOESOPHAGEAL REFLUX DISEASE
  22. OMEPRAZOLE. [Concomitant]
     Active Substance: OMEPRAZOLE
     Indication: GASTROOESOPHAGEAL REFLUX DISEASE
     Dosage: 40 MG, 2X/DAY
  23. ZYRTEC [Concomitant]
     Active Substance: CETIRIZINE HYDROCHLORIDE
     Indication: HYPERSENSITIVITY
     Dosage: 25 MG, 1X/DAY
  24. DICYCLOMINE HCL [Concomitant]
     Active Substance: DICYCLOMINE HYDROCHLORIDE
     Dosage: 20 MG, 3X/DAY
     Route: 048
  25. ACETAMINOPHEN. [Concomitant]
     Active Substance: ACETAMINOPHEN
     Dosage: 500MG Q6H PRN
     Route: 048
  26. HYDROCHLOROTHIAZIDE. [Concomitant]
     Active Substance: HYDROCHLOROTHIAZIDE
     Indication: HYPERTENSION
     Dosage: 12.5 MG, 1X/DAY
     Route: 048
  27. AMLODIPINE BESYLATE. [Concomitant]
     Active Substance: AMLODIPINE BESYLATE
     Indication: BLOOD CHOLESTEROL ABNORMAL
  28. ATORVASTATIN [Concomitant]
     Active Substance: ATORVASTATIN
     Indication: BLOOD PRESSURE ABNORMAL
     Dosage: 40 MG, 1X/DAY
  29. FLUTICASONE PROPIONATE. [Concomitant]
     Active Substance: FLUTICASONE PROPIONATE
     Indication: HYPERSENSITIVITY
     Dosage: 5 MCG TWO PUFFS EACH NOSTRIL DAILY PRN
     Route: 045
  30. MORPHINE SULFATE. [Concomitant]
     Active Substance: MORPHINE SULFATE
     Dosage: 2MG Q4H PRN
     Route: 042
  31. KETOTIFEN FUMARATE. [Concomitant]
     Active Substance: KETOTIFEN FUMARATE
     Dosage: 1 DROP TWICE DAILY EACH EYE
  32. TRAMADOL HCL [Concomitant]
     Active Substance: TRAMADOL HYDROCHLORIDE
     Dosage: 50MG Q6H PRN
     Route: 048
  33. ONDANSETRON HCL [Concomitant]
     Active Substance: ONDANSETRON HYDROCHLORIDE
     Dosage: 4MG Q4H PRN
     Route: 042
  34. FENOFIBRATE. [Concomitant]
     Active Substance: FENOFIBRATE
     Indication: BLOOD CHOLESTEROL INCREASED
     Dosage: 145 MG, 1X/DAY
  35. TYLENOL ARTHRITIS PAIN [Concomitant]
     Active Substance: ACETAMINOPHEN
     Indication: SPONDYLITIS
  36. PRAVASTATIN SODIUM. [Concomitant]
     Active Substance: PRAVASTATIN SODIUM
     Dosage: 20MG QPM
     Route: 048
  37. ALBUTEROL SULFATE. [Concomitant]
     Active Substance: ALBUTEROL SULFATE
     Dosage: 1 PUFF Q4H PRN
  38. LYRICA [Suspect]
     Active Substance: PREGABALIN
     Indication: TETHERED CORD SYNDROME
     Dosage: UNK
     Dates: start: 2010
  39. AZELASTINE [Concomitant]
     Active Substance: AZELASTINE
     Indication: HYPERSENSITIVITY
     Dosage: ONE DROP EACH EYE TWICE DAILY
     Route: 047
  40. PREDNISONE. [Concomitant]
     Active Substance: PREDNISONE
     Dosage: 20 MG, 2X/DAY
     Route: 048

REACTIONS (19)
  - Carotid artery occlusion [Recovering/Resolving]
  - Gastrooesophageal reflux disease [Not Recovered/Not Resolved]
  - Asthenia [Unknown]
  - White blood cell count increased [Unknown]
  - Orthostatic hypotension [Unknown]
  - Blood urea increased [Unknown]
  - Syncope [Unknown]
  - Vertebral artery occlusion [Not Recovered/Not Resolved]
  - Carotid artery occlusion [Not Recovered/Not Resolved]
  - Oesophageal ulcer [Not Recovered/Not Resolved]
  - Chronic obstructive pulmonary disease [Unknown]
  - Transient ischaemic attack [Not Recovered/Not Resolved]
  - Hypertension [Unknown]
  - Carotid artery stenosis [Unknown]
  - Dizziness [Unknown]
  - Coronary artery disease [Unknown]
  - Gastric ulcer [Not Recovered/Not Resolved]
  - Headache [Not Recovered/Not Resolved]
  - Neutrophil count increased [Unknown]

NARRATIVE: CASE EVENT DATE: 2010
